FAERS Safety Report 17856383 (Version 4)
Quarter: 2020Q3

REPORT INFORMATION
  Report Type: Spontaneous
  Country: US (occurrence: US)
  Receive Date: 20200603
  Receipt Date: 20200908
  Transmission Date: 20201103
  Serious: Yes (Hospitalization, Other)
  Sender: FDA-Public Use
  Company Number: US-OTSUKA-2020_013352

PATIENT
  Age: 23 Year
  Sex: Female

DRUGS (3)
  1. ARIPIPRAZOLE. [Suspect]
     Active Substance: ARIPIPRAZOLE
     Indication: PRODUCT USED FOR UNKNOWN INDICATION
     Dosage: 5 MG, QD (FOR 1 WEEK)
     Route: 048
     Dates: start: 2020
  2. ABILIFY MAINTENA [Suspect]
     Active Substance: ARIPIPRAZOLE
     Indication: DEPRESSION
     Dosage: 300 MG, SINGLE (IN THE RIGHT BUTTOCKS)
     Route: 030
     Dates: start: 20200409, end: 20200409
  3. PROZAC [Concomitant]
     Active Substance: FLUOXETINE HYDROCHLORIDE
     Indication: PRODUCT USED FOR UNKNOWN INDICATION
     Dosage: UNK
     Route: 065
     Dates: start: 202004, end: 202005

REACTIONS (29)
  - Dysgraphia [Recovering/Resolving]
  - Product use in unapproved indication [Unknown]
  - Swelling face [Not Recovered/Not Resolved]
  - Dystonia [Recovering/Resolving]
  - Hypoaesthesia [Recovering/Resolving]
  - Gait disturbance [Recovering/Resolving]
  - Hyperphagia [Recovering/Resolving]
  - Drug monitoring procedure incorrectly performed [Unknown]
  - Miosis [Not Recovered/Not Resolved]
  - Anosmia [Not Recovered/Not Resolved]
  - Hypoaesthesia oral [Recovering/Resolving]
  - Blood urine present [Unknown]
  - Menstrual disorder [Unknown]
  - Orthostatic hypotension [Unknown]
  - Vein disorder [Recovering/Resolving]
  - Weight increased [Recovering/Resolving]
  - Altered state of consciousness [Unknown]
  - Haematochezia [Unknown]
  - Reduced facial expression [Not Recovered/Not Resolved]
  - Hemiplegia [Recovering/Resolving]
  - Balance disorder [Not Recovered/Not Resolved]
  - Abdominal pain [Recovering/Resolving]
  - Musculoskeletal stiffness [Recovering/Resolving]
  - Tremor [Recovering/Resolving]
  - Speech disorder [Recovering/Resolving]
  - Confusional state [Unknown]
  - Feeling abnormal [Unknown]
  - Vision blurred [Recovering/Resolving]
  - Wrong technique in product usage process [Unknown]

NARRATIVE: CASE EVENT DATE: 20200409
